FAERS Safety Report 8915270 (Version 2)
Quarter: 2013Q1

REPORT INFORMATION
  Report Type: Report from Study
  Country: US (occurrence: US)
  Receive Date: 20121116
  Receipt Date: 20130201
  Transmission Date: 20140127
  Serious: Yes (Other)
  Sender: FDA-Public Use
  Company Number: US-PURDUE-USA-2012-0095727

PATIENT
  Sex: Male
  Weight: 92.06 kg

DRUGS (1)
  1. OXYCONTIN (NDA 22-272) [Suspect]
     Indication: NEURALGIA
     Dosage: 20 MG, Q12H
     Route: 048
     Dates: start: 20120816

REACTIONS (2)
  - Non-Hodgkin^s lymphoma [Unknown]
  - Pain [Unknown]
